FAERS Safety Report 9431704 (Version 3)
Quarter: 2013Q3

REPORT INFORMATION
  Report Type: Spontaneous
  Country: US (occurrence: US)
  Receive Date: 20130731
  Receipt Date: 20130830
  Transmission Date: 20140515
  Serious: Yes (Other)
  Sender: FDA-Public Use
  Company Number: US-009507513-1307USA015535

PATIENT
  Sex: Female

DRUGS (8)
  1. JANUVIA [Suspect]
     Indication: DIABETES MELLITUS
     Dosage: 50 MG, QD
     Route: 048
     Dates: start: 201303
  2. TRAVATAN [Concomitant]
     Indication: MACULAR DEGENERATION
  3. TRAVATAN [Concomitant]
     Indication: GLAUCOMA
  4. METHAZOLAMIDE [Concomitant]
     Indication: GLAUCOMA
  5. METHAZOLAMIDE [Concomitant]
     Indication: MACULAR DEGENERATION
  6. VITAMINS (UNSPECIFIED) [Concomitant]
     Indication: INTRAOCULAR PRESSURE TEST ABNORMAL
  7. VITAMINS (UNSPECIFIED) [Concomitant]
     Indication: MACULAR DEGENERATION
  8. VITAMINS (UNSPECIFIED) [Concomitant]
     Indication: GLAUCOMA

REACTIONS (5)
  - Blindness [Not Recovered/Not Resolved]
  - Renal disorder [Not Recovered/Not Resolved]
  - Dialysis [Not Recovered/Not Resolved]
  - Feeling of despair [Not Recovered/Not Resolved]
  - Thought blocking [Not Recovered/Not Resolved]
